FAERS Safety Report 13977487 (Version 2)
Quarter: 2017Q3

REPORT INFORMATION
  Report Type: Spontaneous
  Country: AT (occurrence: AT)
  Receive Date: 20170915
  Receipt Date: 20170929
  Transmission Date: 20171128
  Serious: Yes (Death)
  Sender: FDA-Public Use
  Company Number: AT-PFIZER INC-2015168236

PATIENT
  Age: 80 Year
  Sex: Female

DRUGS (4)
  1. MEROPENEM. [Suspect]
     Active Substance: MEROPENEM
     Indication: ANTIBIOTIC THERAPY
     Dosage: 500 MG, (3 X)
     Route: 042
  2. FIDAXOMICIN [Suspect]
     Active Substance: FIDAXOMICIN
     Indication: CLOSTRIDIUM DIFFICILE COLITIS
     Dosage: 200 MG, (2 X)
     Route: 048
  3. METRONIDAZOLE. [Suspect]
     Active Substance: METRONIDAZOLE
     Indication: CLOSTRIDIUM DIFFICILE COLITIS
     Dosage: 500 MG, (3X)
     Route: 048
  4. VANCOMYCIN HCL [Suspect]
     Active Substance: VANCOMYCIN HYDROCHLORIDE
     Indication: ANTIBIOTIC THERAPY
     Dosage: 500 MG, (2 X)
     Route: 042

REACTIONS (3)
  - Sepsis [Fatal]
  - Systemic candida [Fatal]
  - Fungal sepsis [Fatal]
